FAERS Safety Report 13272346 (Version 2)
Quarter: 2017Q2

REPORT INFORMATION
  Report Type: Spontaneous
  Country: FR (occurrence: FR)
  Receive Date: 20170227
  Receipt Date: 20170404
  Transmission Date: 20170830
  Serious: Yes (Hospitalization, Other)
  Sender: FDA-Public Use
  Company Number: PHHY2017FR020582

PATIENT
  Age: 83 Year
  Sex: Female
  Weight: 70 kg

DRUGS (1)
  1. FEMARA [Suspect]
     Active Substance: LETROZOLE
     Indication: BREAST CANCER RECURRENT
     Dosage: 2.5 MG, QD
     Route: 048
     Dates: start: 20161101, end: 201701

REACTIONS (8)
  - Eyelid oedema [Not Recovered/Not Resolved]
  - Autoimmune disorder [Unknown]
  - Dermatomyositis [Unknown]
  - Erythema of eyelid [Not Recovered/Not Resolved]
  - Polymyositis [Unknown]
  - Pruritus [Recovered/Resolved]
  - Lymphoedema [Unknown]
  - Erythema [Not Recovered/Not Resolved]

NARRATIVE: CASE EVENT DATE: 201611
